FAERS Safety Report 5899756-0 (Version None)
Quarter: 2008Q3

REPORT INFORMATION
  Report Type: 
  Country: None (occurrence: None)
  Receive Date: 20080829
  Receipt Date: 20080909
  Transmission Date: 20090109
  Serious: Yes (Other)
  Sender: FDA-Public Use
  Company Number: AEUSA200800220

PATIENT
  Age: 45 Year
  Sex: Female
  Weight: 64.4108 kg

DRUGS (13)
  1. GAMUNEX [Suspect]
     Indication: IMMUNODEFICIENCY COMMON VARIABLE
     Dosage: 40 GM;QM;IV
     Route: 042
     Dates: start: 20050101
  2. CLARITRHOMYCIN [Concomitant]
  3. DILTIAZEM [Concomitant]
  4. LISINOPRIL [Concomitant]
  5. ASPIRIN [Concomitant]
  6. FLONASE [Concomitant]
  7. NEXIUM [Concomitant]
  8. FLOVENT [Concomitant]
  9. ALBUTEROL [Concomitant]
  10. DEXTROSE IN WATER [Concomitant]
  11. BENADRYL [Concomitant]
  12. TYLENOL (CAPLET) [Concomitant]
  13. SOLU-CORTEF [Concomitant]

REACTIONS (7)
  - CANDIDIASIS [None]
  - DIARRHOEA [None]
  - MALAISE [None]
  - NAUSEA [None]
  - PAIN [None]
  - PYREXIA [None]
  - RED BLOOD CELL SEDIMENTATION RATE INCREASED [None]
